FAERS Safety Report 23871172 (Version 1)
Quarter: 2024Q2

REPORT INFORMATION
  Report Type: Spontaneous
  Country: US (occurrence: US)
  Receive Date: 20240518
  Receipt Date: 20240518
  Transmission Date: 20240716
  Serious: No
  Sender: FDA-Public Use
  Company Number: US-SANOFI-02047640

PATIENT
  Sex: Female

DRUGS (1)
  1. AMBIEN [Suspect]
     Active Substance: ZOLPIDEM TARTRATE
     Indication: Pain
     Dosage: UNK UNK, QD (DAILY DOSAGE OF APPROXIMATELY 300 TO 500 MG)
     Route: 065
     Dates: start: 2014

REACTIONS (1)
  - Therapeutic response unexpected [Unknown]
